FAERS Safety Report 26143156 (Version 1)
Quarter: 2025Q4

REPORT INFORMATION
  Report Type: Spontaneous
  Country: US (occurrence: US)
  Receive Date: 20251211
  Receipt Date: 20251211
  Transmission Date: 20260117
  Serious: No
  Sender: ALVOGEN
  Company Number: US-ALVOGEN-2025098027

PATIENT
  Sex: Female

DRUGS (5)
  1. LEVOTHYROXINE SODIUM [Suspect]
     Active Substance: LEVOTHYROXINE SODIUM
     Indication: Hypothyroidism
     Dosage: 75 MCG; EXPIRATION DATE: UU-NOV-2026 ?IN THE MORNING WITH WATER, NO FOOD FOR NEXT 30 MINUTES
     Dates: start: 202504, end: 20250515
  2. LISINOPRIL [Concomitant]
     Active Substance: LISINOPRIL
     Indication: Hypercholesterolaemia
     Dosage: 40 MG
  3. METOPROLOL [Concomitant]
     Active Substance: METOPROLOL
     Indication: Hypercholesterolaemia
     Dosage: 25 MG
  4. ATORVASTATIN [Concomitant]
     Active Substance: ATORVASTATIN
     Indication: Hypercholesterolaemia
     Dosage: 40 MG
  5. XANAX [Concomitant]
     Active Substance: ALPRAZOLAM
     Indication: Anxiety
     Dosage: OCCASIONALLY 1.0?OR 0.5

REACTIONS (9)
  - Loss of personal independence in daily activities [Unknown]
  - Memory impairment [Unknown]
  - Attention deficit hyperactivity disorder [Unknown]
  - Disturbance in attention [Unknown]
  - Panic attack [Unknown]
  - Palpitations [Unknown]
  - Nervousness [Unknown]
  - Anxiety [Unknown]
  - Dyspnoea [Unknown]

NARRATIVE: CASE EVENT DATE: 20250501
